FAERS Safety Report 21917676 (Version 2)
Quarter: 2023Q1

REPORT INFORMATION
  Report Type: Other
  Country: US (occurrence: US)
  Receive Date: 20230127
  Receipt Date: 20230215
  Transmission Date: 20230418
  Serious: Yes (Other)
  Sender: FDA-Public Use
  Company Number: US-DECIPHERA PHARMACEUTICALS LLC-2023US000016

PATIENT
  Sex: Male

DRUGS (1)
  1. QINLOCK [Suspect]
     Active Substance: RIPRETINIB
     Indication: Gastrointestinal stromal tumour
     Dosage: 150 MILLIGRAM, QD
     Route: 048
     Dates: start: 20220420

REACTIONS (11)
  - Pneumonia [Unknown]
  - Influenza [Unknown]
  - Pain [Unknown]
  - Ear pain [Unknown]
  - Neoplasm progression [Unknown]
  - Otorrhoea [Unknown]
  - Pain in extremity [Unknown]
  - Cough [Unknown]
  - Muscle spasms [Unknown]
  - Dry skin [Unknown]
  - Product dose omission issue [Unknown]
